FAERS Safety Report 8737103 (Version 2)
Quarter: 2016Q2

REPORT INFORMATION
  Report Type: Spontaneous
  Country: US (occurrence: US)
  Receive Date: 20120822
  Receipt Date: 20160405
  Transmission Date: 20160815
  Serious: No
  Sender: FDA-Public Use
  Company Number: US-ASTRAZENECA-2011SE57137

PATIENT
  Age: 64 Year
  Sex: Female
  Weight: 70.3 kg

DRUGS (14)
  1. L-THYROXINE [Concomitant]
     Active Substance: LEVOTHYROXINE
     Indication: THYROID DISORDER
  2. DALIRESP [Suspect]
     Active Substance: ROFLUMILAST
     Indication: ASTHMA
     Route: 048
     Dates: start: 201512
  3. PROAIR HFA [Concomitant]
     Active Substance: ALBUTEROL SULFATE
     Dosage: 108 (90 BASE) MCG/ACT, FREQUENCY AS NEEDED
     Route: 055
     Dates: start: 20110105
  4. IPRATROPIUM BROMIDE. [Concomitant]
     Active Substance: IPRATROPIUM BROMIDE
     Dosage: 2 SPRAYS EACH NOSTRIL, TWO TIMES DAILY
     Route: 045
  5. BISOPROLOL-HYDRCCHLOROTHIAZIDE [Concomitant]
     Indication: HYPERTENSION
     Dosage: 2.5/6.25 MG DAILY
     Route: 048
     Dates: start: 20110803
  6. SPIRIVA [Concomitant]
     Active Substance: TIOTROPIUM BROMIDE MONOHYDRATE
     Route: 055
     Dates: start: 20110711
  7. CLOTRIMAZOLE. [Concomitant]
     Active Substance: CLOTRIMAZOLE
     Dosage: 10MG MOUTH AND THROAT, FIVE A DAY X 1 WEEK, AS REQUIRED
  8. SYMBICORT [Suspect]
     Active Substance: BUDESONIDE\FORMOTEROL FUMARATE DIHYDRATE
     Indication: ASTHMA
     Dosage: 160/4.5 MCG, TWO INHALATION TWO TIMES DAILY
     Route: 055
     Dates: start: 20110907
  9. THEOPHYLLINE [Concomitant]
     Active Substance: THEOPHYLLINE ANHYDROUS
     Indication: ASTHMA
     Route: 048
     Dates: start: 20111020
  10. VENTOLIN HFA [Concomitant]
     Active Substance: ALBUTEROL SULFATE
     Dosage: 108 (90 BASE) MCG/ACT, TWO INHALATION FOUR TIMES DAILY, AS NEEDED
     Route: 055
     Dates: start: 20110506
  11. DALIRESP [Suspect]
     Active Substance: ROFLUMILAST
     Indication: ASTHMA
     Route: 048
  12. LEVOTHYROXINE SODIUM. [Concomitant]
     Active Substance: LEVOTHYROXINE SODIUM
     Route: 048
     Dates: start: 20110803
  13. DALIRESP [Suspect]
     Active Substance: ROFLUMILAST
     Indication: ASTHMA
     Route: 048
  14. SERTRALINE HYDROCHLORIDE. [Concomitant]
     Active Substance: SERTRALINE HYDROCHLORIDE
     Route: 048
     Dates: start: 20110711

REACTIONS (15)
  - Rhinorrhoea [Unknown]
  - Arthritis [Unknown]
  - Cough [Unknown]
  - Headache [Unknown]
  - Rhinitis allergic [Unknown]
  - Asthma [Unknown]
  - Hypothyroidism [Unknown]
  - Oropharyngeal pain [Unknown]
  - Essential hypertension [Unknown]
  - Pain [Recovered/Resolved]
  - Dysphonia [Unknown]
  - Productive cough [Unknown]
  - Middle ear effusion [Unknown]
  - Bronchitis [Recovered/Resolved]
  - Influenza like illness [Recovered/Resolved]
